FAERS Safety Report 7218322-8 (Version None)
Quarter: 2011Q1

REPORT INFORMATION
  Report Type: 
  Country: None (occurrence: None)
  Receive Date: 20110110
  Receipt Date: 20100208
  Transmission Date: 20110831
  Serious: No
  Sender: FDA-Public Use
  Company Number: US-BRISTOL-MYERS SQUIBB COMPANY-14969026

PATIENT
  Age: 70 Year
  Sex: Male

DRUGS (1)
  1. DESYREL [Suspect]

REACTIONS (1)
  - HEADACHE [None]
